FAERS Safety Report 21703700 (Version 2)
Quarter: 2022Q4

REPORT INFORMATION
  Report Type: Spontaneous
  Country: US (occurrence: US)
  Receive Date: 20221209
  Receipt Date: 20221221
  Transmission Date: 20230112
  Serious: No
  Sender: FDA-Public Use
  Company Number: US-ORGANON-O2212USA000284

PATIENT
  Sex: Male

DRUGS (1)
  1. DULERA [Suspect]
     Active Substance: FORMOTEROL FUMARATE DIHYDRATE\MOMETASONE FUROATE
     Indication: Hypersensitivity
     Dosage: 1 PUFF ONCE A DAY
     Dates: start: 20220816

REACTIONS (5)
  - Nasal congestion [Unknown]
  - Device malfunction [Unknown]
  - Poor quality device used [Unknown]
  - Product use complaint [Unknown]
  - Product use in unapproved indication [Unknown]

NARRATIVE: CASE EVENT DATE: 20220101
